FAERS Safety Report 6567029-9 (Version None)
Quarter: 2010Q1

REPORT INFORMATION
  Report Type: 
  Country: None (occurrence: None)
  Receive Date: 20100202
  Receipt Date: 20100128
  Transmission Date: 20100710
  Serious: Yes (Hospitalization)
  Sender: FDA-Public Use
  Company Number: GXKR2010DE01256

PATIENT
  Age: 39 Year
  Sex: Male
  Weight: 82 kg

DRUGS (3)
  1. SPIRONOLACTONE (NGX) [Suspect]
     Indication: LIVER DISORDER
     Dosage: 25 MG, QD
     Route: 048
     Dates: start: 20090701, end: 20091126
  2. METOPROLOL [Concomitant]
     Indication: HYPERTENSION
     Dosage: 95 MG, QD
     Route: 048
  3. TORASEMIDE [Concomitant]
     Indication: HYPERTENSION
     Dosage: 5 MG, BID
     Route: 048

REACTIONS (1)
  - PRIMARY HYPOGONADISM [None]
